FAERS Safety Report 23847431 (Version 1)
Quarter: 2024Q2

REPORT INFORMATION
  Report Type: Spontaneous
  Country: IT (occurrence: IT)
  Receive Date: 20240513
  Receipt Date: 20240513
  Transmission Date: 20240715
  Serious: Yes (Other)
  Sender: FDA-Public Use
  Company Number: IT-ALKEM LABORATORIES LIMITED-IT-ALKEM-2023-15499

PATIENT
  Age: 56 Year
  Sex: Female

DRUGS (9)
  1. AZATHIOPRINE [Suspect]
     Active Substance: AZATHIOPRINE
     Indication: Multiple sclerosis
     Dosage: UNK
     Route: 065
  2. CHOLECALCIFEROL [Suspect]
     Active Substance: CHOLECALCIFEROL
     Indication: Vitamin supplementation
     Dosage: 70000 INTERNATIONAL UNIT, QD
     Route: 065
     Dates: start: 201503
  3. CHOLECALCIFEROL [Suspect]
     Active Substance: CHOLECALCIFEROL
     Dosage: 90000 INTERNATIONAL UNIT, QD
     Route: 065
     Dates: start: 201507
  4. CHOLECALCIFEROL [Suspect]
     Active Substance: CHOLECALCIFEROL
     Dosage: 110000 INTERNATIONAL UNIT, QD
     Route: 065
     Dates: start: 201511
  5. CHOLECALCIFEROL [Suspect]
     Active Substance: CHOLECALCIFEROL
     Dosage: 120000 INTERNATIONAL UNIT, QD
     Route: 065
     Dates: start: 201604
  6. CHOLECALCIFEROL [Suspect]
     Active Substance: CHOLECALCIFEROL
     Dosage: 130000 INTERNATIONAL UNIT, QD
     Route: 065
     Dates: start: 201609
  7. BETAFERON [Suspect]
     Active Substance: INTERFERON BETA-1B
     Indication: Multiple sclerosis
     Dosage: UNK
     Route: 065
  8. NATALIZUMAB [Suspect]
     Active Substance: NATALIZUMAB
     Indication: Multiple sclerosis
     Dosage: UNK
     Route: 065
  9. HYDROCORTISONE [Concomitant]
     Active Substance: HYDROCORTISONE
     Indication: Product used for unknown indication
     Dosage: UNK (200-300 MG/DAY)
     Route: 065

REACTIONS (6)
  - Acute kidney injury [Recovering/Resolving]
  - Overdose [Unknown]
  - Hypercalcaemia [Recovered/Resolved]
  - Toxicity to various agents [Unknown]
  - Drug level increased [Recovering/Resolving]
  - Therapy partial responder [Unknown]
